FAERS Safety Report 9350133 (Version 4)
Quarter: 2013Q3

REPORT INFORMATION
  Report Type: Spontaneous
  Country: DE (occurrence: DE)
  Receive Date: 20130616
  Receipt Date: 20130716
  Transmission Date: 20140515
  Serious: Yes (Other)
  Sender: FDA-Public Use
  Company Number: DE-BRISTOL-MYERS SQUIBB COMPANY-18859850

PATIENT
  Age: 74 Year
  Sex: Female
  Weight: 121 kg

DRUGS (13)
  1. ELIQUIS [Suspect]
     Indication: ATRIAL FIBRILLATION
     Dosage: 2 X 2.5 MG/DAY
     Dates: start: 20130130, end: 20130502
  2. DELIX [Concomitant]
     Indication: HYPERTENSION
  3. LYRICA [Concomitant]
     Indication: POLYNEUROPATHY
  4. TORASEMIDE [Concomitant]
     Indication: CARDIAC FAILURE
  5. RANEXA [Concomitant]
     Indication: ANGINA PECTORIS
  6. PRAVASTATIN SODIUM [Concomitant]
     Indication: HYPERLIPIDAEMIA
  7. REPAGLINIDE [Concomitant]
     Indication: DIABETES MELLITUS
  8. ALLOPURINOL [Concomitant]
     Indication: HYPERURICAEMIA
  9. CONCOR [Concomitant]
     Indication: HYPERTENSION
  10. LIORESAL [Concomitant]
     Indication: MUSCLE SPASMS
  11. PANTOZOL [Concomitant]
  12. VITAMIN B12 [Concomitant]
  13. CITALOPRAM [Concomitant]
     Indication: DEPRESSION

REACTIONS (1)
  - Thrombocytopenia [Recovered/Resolved]
